FAERS Safety Report 25117902 (Version 1)
Quarter: 2025Q1

REPORT INFORMATION
  Report Type: Spontaneous
  Country: US (occurrence: None)
  Receive Date: 20250324
  Receipt Date: 20250324
  Transmission Date: 20250409
  Serious: Yes (Disabling)
  Sender: FDA-CTU
  Company Number: None

PATIENT
  Age: 72 Year
  Sex: Female
  Weight: 74.25 kg

DRUGS (11)
  1. RYBELSUS [Suspect]
     Active Substance: SEMAGLUTIDE
     Indication: Diabetes mellitus
     Dosage: 1 TABLET DAILY ORAL ?
     Route: 048
  2. RYBELSUS [Suspect]
     Active Substance: SEMAGLUTIDE
     Indication: Diabetes mellitus
     Dosage: 1 TABLET DAILY ORAL ?
     Route: 048
  3. JANUVIA [Concomitant]
     Active Substance: SITAGLIPTIN PHOSPHATE
  4. Nadolol 40mg, [Concomitant]
  5. METFORMIN [Concomitant]
     Active Substance: METFORMIN HYDROCHLORIDE
  6. SIMVASTATIN [Concomitant]
     Active Substance: SIMVASTATIN
  7. Lisinopril 40 mg, [Concomitant]
  8. baby aspirin 81mg [Concomitant]
  9. B12 vitamin 100mg [Concomitant]
  10. Centrum Women 50+ multi-vitamin [Concomitant]
  11. PREDNISONE [Suspect]
     Active Substance: PREDNISONE

REACTIONS (9)
  - Arthralgia [None]
  - Arthralgia [None]
  - Therapy cessation [None]
  - Middle insomnia [None]
  - Muscle rupture [None]
  - Loss of personal independence in daily activities [None]
  - Polymyalgia rheumatica [None]
  - Insomnia [None]
  - Alopecia [None]

NARRATIVE: CASE EVENT DATE: 20231122
